FAERS Safety Report 24837597 (Version 3)
Quarter: 2025Q1

REPORT INFORMATION
  Report Type: Report from Study
  Country: CA (occurrence: CA)
  Receive Date: 20250113
  Receipt Date: 20250304
  Transmission Date: 20250409
  Serious: Yes (Other)
  Sender: JOHNSON AND JOHNSON
  Company Number: CA-JNJFOC-20241084643

PATIENT
  Age: 10 Year
  Sex: Male
  Weight: 43 kg

DRUGS (9)
  1. REMICADE [Suspect]
     Active Substance: INFLIXIMAB
     Indication: Crohn^s disease
     Route: 041
     Dates: start: 20240811
  2. REMICADE [Suspect]
     Active Substance: INFLIXIMAB
     Dosage: EXP: MA-2027
     Route: 041
  3. REMICADE [Suspect]
     Active Substance: INFLIXIMAB
     Route: 041
     Dates: start: 20240811
  4. TACROLIMUS [Concomitant]
     Active Substance: TACROLIMUS
  5. Sulfatrim-DS [Concomitant]
     Indication: Renal transplant
  6. PREDNISONE [Concomitant]
     Active Substance: PREDNISONE
  7. SODIUM BICARBONATE [Concomitant]
     Active Substance: SODIUM BICARBONATE
  8. MYCOPHENOLIC ACID [Concomitant]
     Active Substance: MYCOPHENOLIC ACID
  9. VITAMIN D3 [Concomitant]
     Active Substance: CHOLECALCIFEROL

REACTIONS (5)
  - Crohn^s disease [Unknown]
  - Chronic kidney disease [Not Recovered/Not Resolved]
  - Incorrect drug administration rate [Unknown]
  - Drug level decreased [Unknown]
  - Poor venous access [Not Recovered/Not Resolved]

NARRATIVE: CASE EVENT DATE: 20241023
